FAERS Safety Report 8459877-5 (Version None)
Quarter: 2012Q2

REPORT INFORMATION
  Report Type: 
  Country: None (occurrence: None)
  Receive Date: 20120622
  Receipt Date: 20120618
  Transmission Date: 20120825
  Serious: Yes (Other)
  Sender: FDA-Public Use
  Company Number: PHHY2012LB051861

PATIENT
  Age: 53 Year
  Sex: Female
  Weight: 70 kg

DRUGS (10)
  1. PROGRAF [Concomitant]
     Indication: RENAL TRANSPLANT
     Dosage: 1 MG, BID
     Route: 048
     Dates: start: 20110219, end: 20110620
  2. LIPITOR [Concomitant]
     Dosage: 40 MG, QD
     Route: 048
     Dates: end: 20110815
  3. LIPITOR [Concomitant]
     Indication: HYPERLIPIDAEMIA
     Dosage: 20 MG, QD
     Route: 048
     Dates: start: 20110705
  4. PREDNISONE TAB [Concomitant]
     Dosage: 5 MG, QD
     Route: 048
     Dates: start: 20111111
  5. CERTICAN [Suspect]
     Dosage: 3 DF, BID
     Route: 048
     Dates: start: 20110620
  6. CELLCEPT [Concomitant]
     Indication: RENAL TRANSPLANT
     Dosage: 1 G, BID
     Route: 048
     Dates: start: 20110219
  7. BACTRIM [Concomitant]
     Indication: INFECTION PROPHYLAXIS
     Dosage: HALF TABLET DAILY
     Route: 048
     Dates: start: 20110219
  8. PREDNISONE TAB [Concomitant]
     Dosage: 10 MG, QD
     Route: 048
     Dates: start: 20110510
  9. CERTICAN [Suspect]
     Indication: RENAL TRANSPLANT
     Dosage: 1 DF, BID
     Route: 048
     Dates: start: 20110510
  10. CERTICAN [Suspect]
     Dosage: 1 DF, BID
     Route: 048
     Dates: start: 20111216, end: 20120410

REACTIONS (2)
  - EOSINOPHILIA [None]
  - IMMUNOSUPPRESSANT DRUG LEVEL INCREASED [None]
